FAERS Safety Report 6005320-5 (Version None)
Quarter: 2008Q4

REPORT INFORMATION
  Report Type: 
  Country: None (occurrence: None)
  Receive Date: 20081216
  Receipt Date: 20081202
  Transmission Date: 20090506
  Serious: Yes (Hospitalization)
  Sender: FDA-Public Use
  Company Number: FR-GENENTECH-260768

PATIENT
  Sex: Female
  Weight: 44 kg

DRUGS (16)
  1. RITUXIMAB [Suspect]
     Indication: NON-HODGKIN'S LYMPHOMA
     Dosage: 555 MG, QD
     Route: 042
     Dates: start: 20080206
  2. RITUXIMAB [Suspect]
     Dosage: 520 MG, UNK
     Route: 042
  3. CYCLOPHOSPHAMIDE [Suspect]
     Indication: DRUG USE FOR UNKNOWN INDICATION
     Dosage: 1775 MG, QD
     Route: 042
     Dates: start: 20080206
  4. CYCLOPHOSPHAMIDE [Suspect]
     Dosage: 1762 MG, UNK
     Route: 042
  5. DOXORUBICIN HCL [Suspect]
     Indication: DRUG USE FOR UNKNOWN INDICATION
     Dosage: 111 MG, QD
     Route: 042
     Dates: start: 20080206
  6. DOXORUBICIN HCL [Suspect]
     Dosage: 110 MG, UNK
     Route: 042
  7. VINDESINE [Suspect]
     Indication: DRUG USE FOR UNKNOWN INDICATION
     Dosage: 3 MG, QD
     Route: 042
     Dates: start: 20080206, end: 20080310
  8. VINDESINE [Suspect]
     Dosage: 2.7 MG, UNK
     Route: 042
  9. BLEOMYCIN SULFATE [Suspect]
     Indication: DRUG USE FOR UNKNOWN INDICATION
     Dosage: 10 UNIT, QD
     Route: 042
     Dates: start: 20080206
  10. PREDNISONE TAB [Suspect]
     Indication: DRUG USE FOR UNKNOWN INDICATION
     Dosage: 90 MG, QD
     Route: 042
     Dates: start: 20080206
  11. PREDNISONE TAB [Suspect]
     Dosage: 82.5 MG, UNK
     Route: 042
  12. METHOTREXATE [Suspect]
     Indication: DRUG USE FOR UNKNOWN INDICATION
     Dosage: 15 UNIT, QD
     Route: 042
     Dates: start: 20080207
  13. LENOGRASTIM [Suspect]
     Indication: DIFFUSE LARGE B-CELL LYMPHOMA
     Dosage: UNK
     Route: 058
     Dates: start: 20080211
  14. AMIKACIN [Concomitant]
     Indication: DRUG USE FOR UNKNOWN INDICATION
  15. CEFTAZIDIME [Concomitant]
     Indication: DRUG USE FOR UNKNOWN INDICATION
  16. METOCLOPRAMIDE [Concomitant]
     Indication: DRUG USE FOR UNKNOWN INDICATION

REACTIONS (2)
  - FEBRILE NEUTROPENIA [None]
  - MUCOSAL INFLAMMATION [None]
